FAERS Safety Report 14302861 (Version 6)
Quarter: 2018Q3

REPORT INFORMATION
  Report Type: Report from Study
  Country: DE (occurrence: DE)
  Receive Date: 20171219
  Receipt Date: 20180919
  Transmission Date: 20181010
  Serious: Yes (Other)
  Sender: FDA-Public Use
  Company Number: DE-TEVA-2017-DE-832420

PATIENT
  Sex: Female
  Weight: 84 kg

DRUGS (76)
  1. DEXAMETHASONE. [Suspect]
     Active Substance: DEXAMETHASONE
     Dosage: 40 MG
     Route: 048
     Dates: start: 20171106, end: 20171106
  2. DEXAMETHASONE. [Suspect]
     Active Substance: DEXAMETHASONE
     Dosage: 20 MG, UNK
     Route: 065
     Dates: start: 20180221, end: 20180221
  3. DEXAMETHASONE. [Suspect]
     Active Substance: DEXAMETHASONE
     Route: 065
     Dates: start: 20180418, end: 20180418
  4. DEXAMETHASONE. [Suspect]
     Active Substance: DEXAMETHASONE
     Dosage: 20 MG, UNK
     Route: 065
     Dates: start: 20180108, end: 20180108
  5. CARFILZOMIB [Suspect]
     Active Substance: CARFILZOMIB
     Dosage: 27 MG
     Route: 041
     Dates: start: 20171120, end: 20171121
  6. CARFILZOMIB [Suspect]
     Active Substance: CARFILZOMIB
     Route: 011
     Dates: start: 20180502, end: 20180503
  7. CARFILZOMIB [Suspect]
     Active Substance: CARFILZOMIB
     Route: 042
     Dates: start: 20180321, end: 20180321
  8. CARFILZOMIB [Suspect]
     Active Substance: CARFILZOMIB
     Route: 042
  9. CARFILZOMIB [Suspect]
     Active Substance: CARFILZOMIB
     Route: 042
     Dates: start: 20171013, end: 20171014
  10. CARFILZOMIB [Suspect]
     Active Substance: CARFILZOMIB
     Route: 042
     Dates: start: 20180102, end: 20180103
  11. REVLIMID [Suspect]
     Active Substance: LENALIDOMIDE
     Dosage: 15 MG, UNK
     Route: 065
     Dates: start: 20180418, end: 20180425
  12. DEKRISTOL [Concomitant]
     Active Substance: CHOLECALCIFEROL
     Indication: PROPHYLAXIS
     Route: 048
  13. ZOPICLONE RATIOPHARM [Concomitant]
     Indication: PROPHYLAXIS
     Dosage: 7.5 MG, AS NECESSARY
  14. DEXAMETHASONE. [Suspect]
     Active Substance: DEXAMETHASONE
     Route: 048
     Dates: start: 20171211, end: 20171211
  15. CARFILZOMIB [Suspect]
     Active Substance: CARFILZOMIB
     Dosage: 20 MG
     Route: 041
     Dates: start: 20171006, end: 20171007
  16. NOVALGIN [Concomitant]
     Indication: PROPHYLAXIS
     Dosage: 500 MILLIGRAM DAILY; 4000MG
     Route: 048
  17. DEXAMETHASONE. [Suspect]
     Active Substance: DEXAMETHASONE
     Dosage: 40 MG
     Route: 048
     Dates: start: 20171006, end: 20171006
  18. DEXAMETHASONE. [Suspect]
     Active Substance: DEXAMETHASONE
     Dosage: 20 MG, UNK
     Route: 065
     Dates: start: 20180228, end: 20180228
  19. DEXAMETHASONE. [Suspect]
     Active Substance: DEXAMETHASONE
     Route: 065
     Dates: start: 20180404, end: 20180404
  20. DEXAMETHASONE. [Suspect]
     Active Substance: DEXAMETHASONE
     Route: 048
     Dates: start: 20171127, end: 20171127
  21. CARFILZOMIB [Suspect]
     Active Substance: CARFILZOMIB
     Dosage: 20 MG/M2, UNK
     Route: 042
     Dates: start: 20171006, end: 20171007
  22. CARFILZOMIB [Suspect]
     Active Substance: CARFILZOMIB
     Route: 042
     Dates: start: 20180109, end: 20180110
  23. NOVALGIN [Concomitant]
     Dosage: 4000 MILLIGRAM DAILY;
     Route: 048
     Dates: start: 20140212
  24. PARACODIN [Concomitant]
     Active Substance: DIHYDROCODEINE BITARTRATE
     Indication: PROPHYLAXIS
     Dosage: 8MG AS NECESSARY
  25. DEXAMETHASONE. [Suspect]
     Active Substance: DEXAMETHASONE
     Dosage: 40 MG
     Route: 048
     Dates: start: 20171120, end: 20171120
  26. DEXAMETHASONE. [Suspect]
     Active Substance: DEXAMETHASONE
     Dosage: 40 MG
     Route: 048
  27. DEXAMETHASONE. [Suspect]
     Active Substance: DEXAMETHASONE
     Route: 048
     Dates: start: 20171225, end: 20171225
  28. CARFILZOMIB [Suspect]
     Active Substance: CARFILZOMIB
     Route: 042
     Dates: start: 20171211, end: 20171212
  29. CARFILZOMIB [Suspect]
     Active Substance: CARFILZOMIB
     Route: 042
     Dates: start: 20171204, end: 20171205
  30. CARFILZOMIB [Suspect]
     Active Substance: CARFILZOMIB
     Route: 042
     Dates: start: 20180314, end: 20180315
  31. CARFILZOMIB [Suspect]
     Active Substance: CARFILZOMIB
     Route: 042
     Dates: start: 20180214, end: 20180215
  32. REVLIMID [Suspect]
     Active Substance: LENALIDOMIDE
     Dosage: 25 MG
     Route: 048
     Dates: start: 20171204, end: 20171224
  33. REVLIMID [Suspect]
     Active Substance: LENALIDOMIDE
     Route: 065
     Dates: start: 20180214, end: 20180306
  34. REVLIMID [Suspect]
     Active Substance: LENALIDOMIDE
     Route: 065
     Dates: start: 20180101, end: 20180121
  35. TORASEMID?RATIOPHARM [Concomitant]
     Active Substance: TORSEMIDE
     Indication: HYPERTENSION
     Dosage: 10 MILLIGRAM DAILY; 10 MG, UNK (1?0?0)
     Route: 048
  36. ACICLOVIR [Concomitant]
     Active Substance: ACYCLOVIR
     Indication: PROPHYLAXIS
     Dosage: 800  DAILY;
     Dates: start: 20171005
  37. PAMIDRONAT GRY [Concomitant]
     Indication: PROPHYLAXIS
     Dates: start: 20140306
  38. LAXOBERAL [Concomitant]
     Active Substance: SODIUM PICOSULFATE
     Indication: PROPHYLAXIS
     Dosage: 7.78 MG, AS NECESSARY
  39. DEXAMETHASONE. [Suspect]
     Active Substance: DEXAMETHASONE
     Dosage: 40 MG
     Route: 048
     Dates: start: 20171020, end: 20171020
  40. DEXAMETHASONE. [Suspect]
     Active Substance: DEXAMETHASONE
     Route: 065
     Dates: start: 20180115, end: 20180115
  41. DEXAMETHASONE. [Suspect]
     Active Substance: DEXAMETHASONE
     Route: 065
     Dates: start: 20180122, end: 20180122
  42. DEXAMETHASONE. [Suspect]
     Active Substance: DEXAMETHASONE
     Route: 065
     Dates: start: 20180214, end: 20180214
  43. DEXAMETHASONE. [Suspect]
     Active Substance: DEXAMETHASONE
     Route: 048
     Dates: start: 20171020, end: 20171020
  44. DEXAMETHASONE. [Suspect]
     Active Substance: DEXAMETHASONE
     Route: 048
     Dates: start: 20171218, end: 20171218
  45. CARFILZOMIB [Suspect]
     Active Substance: CARFILZOMIB
     Dosage: 20 MG/M2, UNK
     Route: 042
     Dates: start: 20180418, end: 20180419
  46. REVLIMID [Suspect]
     Active Substance: LENALIDOMIDE
     Dosage: 25 MG
     Route: 048
     Dates: start: 20171106, end: 20171126
  47. REVLIMID [Suspect]
     Active Substance: LENALIDOMIDE
     Dosage: 10 MG, UNK
     Route: 065
     Dates: start: 20180509
  48. DEKRISTOL [Concomitant]
     Active Substance: CHOLECALCIFEROL
     Dates: start: 20161020
  49. ASPIRIN. [Concomitant]
     Active Substance: ASPIRIN
     Indication: PROPHYLAXIS
     Dates: start: 20171005
  50. DEXAMETHASONE. [Suspect]
     Active Substance: DEXAMETHASONE
     Dosage: 20 MG, UNK
     Route: 065
     Dates: start: 20180509
  51. DEXAMETHASONE. [Suspect]
     Active Substance: DEXAMETHASONE
     Route: 065
     Dates: start: 20180425, end: 20180425
  52. DEXAMETHASONE. [Suspect]
     Active Substance: DEXAMETHASONE
     Route: 048
     Dates: start: 20171113, end: 20171113
  53. CARFILZOMIB [Suspect]
     Active Substance: CARFILZOMIB
     Dosage: 27 MG/M2, UNK
     Route: 042
     Dates: start: 20171120, end: 20171121
  54. CARFILZOMIB [Suspect]
     Active Substance: CARFILZOMIB
     Dosage: 20 MG/M2, UNK
     Route: 042
     Dates: start: 20180328, end: 20180329
  55. REVLIMID [Suspect]
     Active Substance: LENALIDOMIDE
     Dosage: 14 MG, UNK
     Route: 065
     Dates: start: 20180314, end: 20180403
  56. DEXAMETHASONE. [Suspect]
     Active Substance: DEXAMETHASONE
     Indication: PLASMA CELL MYELOMA
     Dosage: 40 MG
     Route: 048
     Dates: start: 20171013, end: 20171013
  57. DEXAMETHASONE. [Suspect]
     Active Substance: DEXAMETHASONE
     Dosage: 40 MG
     Route: 048
     Dates: start: 20171027, end: 20171027
  58. DEXAMETHASONE. [Suspect]
     Active Substance: DEXAMETHASONE
     Route: 065
     Dates: start: 20180314, end: 20180314
  59. DEXAMETHASONE. [Suspect]
     Active Substance: DEXAMETHASONE
     Route: 065
     Dates: start: 20180328, end: 20180328
  60. CARFILZOMIB [Suspect]
     Active Substance: CARFILZOMIB
     Dosage: 27 MG
     Route: 041
     Dates: start: 20171013, end: 20171014
  61. CARFILZOMIB [Suspect]
     Active Substance: CARFILZOMIB
     Dosage: 27 MG
     Route: 041
     Dates: start: 20171113, end: 20171114
  62. CARFILZOMIB [Suspect]
     Active Substance: CARFILZOMIB
     Route: 042
     Dates: start: 20171218, end: 20171219
  63. CARFILZOMIB [Suspect]
     Active Substance: CARFILZOMIB
     Route: 042
     Dates: start: 20180116, end: 20180117
  64. CARFILZOMIB [Suspect]
     Active Substance: CARFILZOMIB
     Route: 042
     Dates: start: 20180221, end: 20180222
  65. REVLIMID [Suspect]
     Active Substance: LENALIDOMIDE
     Indication: PLASMA CELL MYELOMA
     Dosage: 25 MG
     Route: 048
     Dates: start: 20171006, end: 20171026
  66. VERAPAMIL?RATIOPHARM [Concomitant]
     Indication: HYPERTENSION
     Dosage: 240 MG, UNK (1/2?0?0)
     Route: 048
  67. DEXAMETHASONE. [Suspect]
     Active Substance: DEXAMETHASONE
     Dosage: 40 MG
     Route: 048
     Dates: start: 20171113, end: 20171113
  68. DEXAMETHASONE. [Suspect]
     Active Substance: DEXAMETHASONE
     Route: 065
     Dates: start: 20180101, end: 20180101
  69. DEXAMETHASONE. [Suspect]
     Active Substance: DEXAMETHASONE
     Dosage: 20 MG, UNK
     Route: 065
     Dates: start: 20180321, end: 20180321
  70. DEXAMETHASONE. [Suspect]
     Active Substance: DEXAMETHASONE
     Route: 065
     Dates: start: 20180307, end: 20180307
  71. DEXAMETHASONE. [Suspect]
     Active Substance: DEXAMETHASONE
     Route: 048
     Dates: start: 20171204, end: 20171204
  72. CARFILZOMIB [Suspect]
     Active Substance: CARFILZOMIB
     Indication: PLASMA CELL MYELOMA
     Dosage: 27 MG,
     Route: 041
     Dates: start: 20171020, end: 20171021
  73. CARFILZOMIB [Suspect]
     Active Substance: CARFILZOMIB
     Dosage: 27 MG
     Route: 041
     Dates: start: 20171106, end: 20171107
  74. CARFILZOMIB [Suspect]
     Active Substance: CARFILZOMIB
     Route: 042
     Dates: start: 20180228, end: 20180301
  75. CARFILZOMIB [Suspect]
     Active Substance: CARFILZOMIB
     Dosage: 20 MG/M2, UNK
     Route: 042
     Dates: start: 20180509
  76. VERAPAMIL?RATIOPHARM [Concomitant]
     Dosage: 120 MILLIGRAM DAILY;

REACTIONS (4)
  - Neutrophil count decreased [Not Recovered/Not Resolved]
  - Anaemia [Not Recovered/Not Resolved]
  - Thrombocytopenia [Not Recovered/Not Resolved]
  - Neutropenia [Not Recovered/Not Resolved]

NARRATIVE: CASE EVENT DATE: 20171018
